FAERS Safety Report 6067815-8 (Version None)
Quarter: 2009Q1

REPORT INFORMATION
  Report Type: 
  Country: None (occurrence: None)
  Receive Date: 20090203
  Receipt Date: 20090119
  Transmission Date: 20090719
  Serious: Yes (Hospitalization)
  Sender: FDA-Public Use
  Company Number: 2009MB000003

PATIENT
  Age: 31 Year
  Sex: Female

DRUGS (4)
  1. KEFLEX [Suspect]
     Indication: OTITIS MEDIA
     Dates: start: 20010101, end: 20010101
  2. CEFACLOR [Suspect]
     Indication: OTITIS MEDIA
     Dates: start: 20010101
  3. BIAXIN [Suspect]
     Indication: OTITIS MEDIA
     Dosage: 500 MG; BID
     Dates: start: 20010101
  4. PEPCID [Concomitant]

REACTIONS (15)
  - ABDOMINAL DISCOMFORT [None]
  - ANAEMIA [None]
  - BACK PAIN [None]
  - BALANCE DISORDER [None]
  - CHILLS [None]
  - CONFUSIONAL STATE [None]
  - DRUG INEFFECTIVE [None]
  - DYSARTHRIA [None]
  - HEADACHE [None]
  - NAUSEA [None]
  - OSTEOMYELITIS [None]
  - RASH [None]
  - RED BLOOD CELL SCHISTOCYTES PRESENT [None]
  - THROMBOTIC THROMBOCYTOPENIC PURPURA [None]
  - URINE COLOUR ABNORMAL [None]
